FAERS Safety Report 25790092 (Version 1)
Quarter: 2025Q3

REPORT INFORMATION
  Report Type: Spontaneous
  Country: CN (occurrence: CN)
  Receive Date: 20250911
  Receipt Date: 20250911
  Transmission Date: 20251020
  Serious: Yes (Other)
  Sender: MDD OPERATIONS
  Company Number: CN-SOL-SOL202509-003443

PATIENT
  Age: 37 Year
  Sex: Female

DRUGS (1)
  1. RIMABOTULINUMTOXINB [Suspect]
     Active Substance: RIMABOTULINUMTOXINB
     Indication: Skin wrinkling

REACTIONS (3)
  - Ophthalmoplegia [Recovered/Resolved]
  - Procedural dizziness [Recovered/Resolved]
  - Product use in unapproved indication [Unknown]
